FAERS Safety Report 7140350-1 (Version None)
Quarter: 2010Q4

REPORT INFORMATION
  Report Type: 
  Country: None (occurrence: None)
  Receive Date: 20101207
  Receipt Date: 20101129
  Transmission Date: 20110411
  Serious: No
  Sender: FDA-Public Use
  Company Number: US-BIOGENIDEC-2010BI012131

PATIENT
  Sex: Female

DRUGS (2)
  1. TYSABRI [Suspect]
     Indication: MULTIPLE SCLEROSIS
     Route: 042
     Dates: start: 20091023
  2. AVONEX [Concomitant]
     Indication: MULTIPLE SCLEROSIS
     Route: 030

REACTIONS (9)
  - AMNESIA [None]
  - ASTHENIA [None]
  - DRUG EFFECT DECREASED [None]
  - FATIGUE [None]
  - FEELING ABNORMAL [None]
  - HEADACHE [None]
  - HYPOAESTHESIA FACIAL [None]
  - MULTIPLE SCLEROSIS [None]
  - WHITE BLOOD CELL COUNT INCREASED [None]
